FAERS Safety Report 19760974 (Version 1)
Quarter: 2021Q3

REPORT INFORMATION
  Report Type: Spontaneous
  Country: US (occurrence: US)
  Receive Date: 20210827
  Receipt Date: 20210827
  Transmission Date: 20211014
  Serious: No
  Sender: FDA-Public Use
  Company Number: None

PATIENT
  Age: 63 Year
  Sex: Female

DRUGS (7)
  1. METHOTREXATE. [Concomitant]
     Active Substance: METHOTREXATE
  2. FOLIC ACID. [Concomitant]
     Active Substance: FOLIC ACID
  3. OMEPRAZOLE. [Concomitant]
     Active Substance: OMEPRAZOLE
  4. JANUVIA [Concomitant]
     Active Substance: SITAGLIPTIN PHOSPHATE
  5. XELJANZ [Suspect]
     Active Substance: TOFACITINIB CITRATE
     Indication: RHEUMATOID ARTHRITIS
     Route: 048
     Dates: start: 20201012
  6. ATORVASTATIN [Concomitant]
     Active Substance: ATORVASTATIN
  7. LEVOTHYROXIN [Concomitant]
     Active Substance: LEVOTHYROXINE

REACTIONS (1)
  - Intentional dose omission [None]

NARRATIVE: CASE EVENT DATE: 20210816
